FAERS Safety Report 4558488-1 (Version None)
Quarter: 2005Q1

REPORT INFORMATION
  Report Type: 
  Country: None (occurrence: None)
  Receive Date: 20050119
  Receipt Date: 20050111
  Transmission Date: 20050727
  Serious: Yes (Other)
  Sender: FDA-Public Use
  Company Number: 2004-12-0637

PATIENT
  Age: 17 Year
  Sex: Female
  Weight: 54 kg

DRUGS (5)
  1. AERIUS           (DESLORATADINE) [Suspect]
     Indication: URTICARIA
     Dosage: 1 TAB ORAL
     Route: 048
     Dates: start: 20041122, end: 20041123
  2. PERIDYS [Suspect]
     Indication: COLITIS
     Dosage: 2 TAB TID ORAL
     Route: 048
     Dates: start: 20041122, end: 20041128
  3. ....... [Concomitant]
  4. DEBRIDAT [Suspect]
     Indication: COLITIS
     Dosage: 2 TAB TID ORAL
     Route: 048
     Dates: start: 20041122, end: 20041128
  5. ....... [Concomitant]

REACTIONS (1)
  - HEPATITIS [None]
